FAERS Safety Report 18864946 (Version 1)
Quarter: 2021Q1

REPORT INFORMATION
  Report Type: Spontaneous
  Country: FR (occurrence: FR)
  Receive Date: 20210208
  Receipt Date: 20210208
  Transmission Date: 20210420
  Serious: Yes (Hospitalization)
  Sender: FDA-Public Use
  Company Number: FR-PFIZER INC-2021096684

PATIENT
  Age: 55 Year
  Sex: Female
  Weight: 53 kg

DRUGS (14)
  1. PARACETAMOL [Concomitant]
     Active Substance: ACETAMINOPHEN
     Dosage: UNK
  2. DOXORUBICIN HCL [Suspect]
     Active Substance: DOXORUBICIN HYDROCHLORIDE
     Indication: SARCOMA
     Dosage: 30 MG, 1X/DAY
     Route: 042
     Dates: start: 20201209, end: 20201210
  3. HOLOXAN [Suspect]
     Active Substance: IFOSFAMIDE
     Indication: SARCOMA
     Dosage: 3800 MG
     Route: 042
     Dates: start: 20201209, end: 20201210
  4. FORLAX [Concomitant]
     Active Substance: POLYETHYLENE GLYCOL 4000
     Dosage: UNK
  5. ONDANSETRON [Concomitant]
     Active Substance: ONDANSETRON
     Dosage: UNK
  6. MORPHINE [Concomitant]
     Active Substance: MORPHINE
     Dosage: UNK
  7. METHYLPREDNISOLONE. [Concomitant]
     Active Substance: METHYLPREDNISOLONE
     Dosage: UNK
  8. METOCLOPRAMIDE. [Concomitant]
     Active Substance: METOCLOPRAMIDE
     Dosage: UNK
  9. MESNA. [Concomitant]
     Active Substance: MESNA
     Dosage: UNK
  10. MIANSERINE [MIANSERIN HYDROCHLORIDE] [Concomitant]
     Active Substance: MIANSERIN HYDROCHLORIDE
     Dosage: UNK
  11. TRIMETHYLPHLOROGLUCINOL [Concomitant]
     Active Substance: 1,3,5-TRIMETHOXYBENZENE
     Dosage: UNK
  12. RACECADOTRIL [Concomitant]
     Active Substance: RACECADOTRIL
     Dosage: UNK
  13. APREPITANT. [Concomitant]
     Active Substance: APREPITANT
     Dosage: UNK
  14. BROMAZEPAM [Concomitant]
     Active Substance: BROMAZEPAM
     Dosage: UNK

REACTIONS (3)
  - Pancytopenia [Recovered/Resolved]
  - Acute kidney injury [Recovered/Resolved]
  - Encephalopathy [Recovered/Resolved]

NARRATIVE: CASE EVENT DATE: 20201211
